FAERS Safety Report 9696821 (Version 1)
Quarter: 2013Q4

REPORT INFORMATION
  Report Type: Report from Study
  Country: US (occurrence: US)
  Receive Date: 20131119
  Receipt Date: 20131119
  Transmission Date: 20140711
  Serious: Yes (Hospitalization)
  Sender: FDA-Public Use
  Company Number: US-ROCHE-1301915

PATIENT
  Age: 43 Year
  Sex: Female
  Weight: 77.63 kg

DRUGS (11)
  1. RITUXAN [Suspect]
     Indication: AUTOIMMUNE PANCREATITIS
     Route: 042
     Dates: start: 201101
  2. COUMADIN [Concomitant]
     Indication: DEEP VEIN THROMBOSIS
     Dosage: DAILY
     Route: 048
  3. METHADONE [Concomitant]
     Dosage: 2 TO 3 TABS THRICE A DAY
     Route: 065
  4. FENTANYL [Concomitant]
     Route: 048
  5. PLAQUENIL [Concomitant]
     Route: 048
  6. DILANTIN [Concomitant]
     Dosage: 2 AM, 1 PM
     Route: 048
  7. PROPRANOLOL [Concomitant]
     Dosage: QD
     Route: 065
  8. EFFEXOR [Concomitant]
     Dosage: EFFEXOR ER 225 MG IN AM AND 150 MG AT HS
     Route: 065
  9. FERROUS GLUCONATE [Concomitant]
     Dosage: BID
     Route: 065
  10. CATAPRES PATCH [Concomitant]
     Route: 065
  11. CLONAZEPAM [Concomitant]
     Dosage: 1 MG  IN AM AND 2 MG AT HS
     Route: 065

REACTIONS (14)
  - Abdominal pain [Not Recovered/Not Resolved]
  - Pancreatitis [Unknown]
  - Urinary tract infection [Unknown]
  - Systemic lupus erythematosus [Unknown]
  - Ear pain [Unknown]
  - Pyrexia [Unknown]
  - Hyperhidrosis [Unknown]
  - Pruritus [Unknown]
  - Nail discolouration [Unknown]
  - Neck mass [Unknown]
  - Bone pain [Unknown]
  - Skin papilloma [Unknown]
  - Orthostatic hypotension [Unknown]
  - Odynophagia [Unknown]
